FAERS Safety Report 4849227-5 (Version None)
Quarter: 2005Q4

REPORT INFORMATION
  Report Type: 
  Country: None (occurrence: None)
  Receive Date: 20051209
  Receipt Date: 20051125
  Transmission Date: 20060501
  Serious: Yes (Hospitalization)
  Sender: FDA-Public Use
  Company Number: FR-JNJFOC-20051200383

PATIENT
  Age: 72 Year
  Sex: Male

DRUGS (6)
  1. TOPALGIC [Suspect]
     Route: 048
  2. TOPALGIC [Suspect]
     Route: 048
  3. TOPALGIC [Suspect]
     Route: 048
  4. TOPALGIC [Suspect]
     Route: 048
  5. TOPALGIC [Suspect]
     Indication: DRUG USE FOR UNKNOWN INDICATION
     Route: 048
  6. ZECLAR [Interacting]
     Indication: DRUG USE FOR UNKNOWN INDICATION
     Route: 048

REACTIONS (3)
  - CONFUSIONAL STATE [None]
  - DRUG INTERACTION [None]
  - HALLUCINATION [None]
